FAERS Safety Report 10188882 (Version 1)
Quarter: 2014Q2

REPORT INFORMATION
  Report Type: Spontaneous
  Country: HR (occurrence: HR)
  Receive Date: 20140522
  Receipt Date: 20140522
  Transmission Date: 20141212
  Serious: Yes (Other)
  Sender: FDA-Public Use
  Company Number: HR-B.I. PHARMACEUTICALS,INC./RIDGEFIELD-2014-BI-22336HR

PATIENT
  Age: 58 Year
  Sex: Male

DRUGS (4)
  1. MOVALIS [Suspect]
     Indication: INTERVERTEBRAL DISC DISORDER
     Dosage: 15 MG
     Route: 048
     Dates: start: 20140120, end: 20140205
  2. SALAZOPYRIN EN [Concomitant]
     Indication: INTERVERTEBRAL DISC DISORDER
     Dosage: 1000 MG
     Route: 048
     Dates: start: 20140120, end: 20140205
  3. TRITAZIDE [Concomitant]
     Indication: ESSENTIAL HYPERTENSION
     Dosage: DOSE PER APPLICATION: 1DF (5MG RAMIPRIL + 25MG HYDROCHLOROTHIAZIDE)
     Route: 048
  4. CONCOR COR [Concomitant]
     Indication: ESSENTIAL HYPERTENSION
     Dosage: 1.25 MG
     Route: 048

REACTIONS (5)
  - Blood pressure increased [Unknown]
  - Epistaxis [Unknown]
  - Haematochezia [Not Recovered/Not Resolved]
  - Off label use [Unknown]
  - Medication error [Unknown]
